FAERS Safety Report 8900809 (Version 3)
Quarter: 2012Q4

REPORT INFORMATION
  Report Type: 
  Country: US (occurrence: US)
  Receive Date: 20121109
  Receipt Date: 20121206
  Transmission Date: 20130627
  Serious: Yes (Hospitalization)
  Sender: FDA-Public Use
  Company Number: US-UCBSA-070284

PATIENT
  Age: 33 Year
  Sex: Female

DRUGS (15)
  1. CIMZIA [Suspect]
     Indication: CROHN^S DISEASE
     Dosage: ON INITIAL/INDUCTION DOSING SCHEDULE
     Dates: start: 20121005
  2. APRISO [Concomitant]
     Indication: CROHN^S DISEASE
  3. LIBRAX [Concomitant]
     Indication: CROHN^S DISEASE
  4. VOLTAREN [Concomitant]
     Indication: PAIN
     Dosage: AS NEEDED
  5. SYNTHROID [Concomitant]
     Indication: HYPOTHYROIDISM
     Dosage: DAILY DOSE:75 MCG
  6. CYTOMOLE [Concomitant]
     Indication: HYPOTHYROIDISM
     Dosage: DAILY DOSE: 5 MCG
  7. ACTZ [Concomitant]
     Indication: HYPERTENSION
  8. OMEPRAZOLE [Concomitant]
     Indication: GASTROOESOPHAGEAL REFLUX DISEASE
     Dosage: DAILY DOSE: 20 MG
  9. MAGOX [Concomitant]
     Indication: MINERAL SUPPLEMENTATION
  10. ZOFRAN [Concomitant]
     Indication: NAUSEA
  11. TOPAMAX [Concomitant]
     Indication: MIGRAINE
     Dosage: 100 MG AT BED TIME
  12. EFFEXOR XR [Concomitant]
     Indication: DEPRESSION
     Dosage: DAILY DOSE; 37.5 MG
  13. EFFEXOR XR [Concomitant]
     Indication: DEPRESSION
     Dosage: DAILY DOSE; 75 MG
  14. PROZAC [Concomitant]
     Indication: DEPRESSION
  15. NORCO [Concomitant]
     Indication: PAIN
     Dosage: 7.5 MG/325 MG

REACTIONS (15)
  - Anal abscess [Not Recovered/Not Resolved]
  - Dehydration [Recovered/Resolved]
  - Heart rate increased [Recovered/Resolved]
  - Crohn^s disease [Recovered/Resolved]
  - Endometriosis [Not Recovered/Not Resolved]
  - Weight decreased [Not Recovered/Not Resolved]
  - Abscess [Not Recovered/Not Resolved]
  - Post procedural discharge [Not Recovered/Not Resolved]
  - Cystitis noninfective [Not Recovered/Not Resolved]
  - Abdominal pain upper [Not Recovered/Not Resolved]
  - Abdominal pain [Not Recovered/Not Resolved]
  - Back pain [Not Recovered/Not Resolved]
  - Nausea [Recovering/Resolving]
  - Decreased appetite [Recovering/Resolving]
  - Feeling abnormal [Not Recovered/Not Resolved]
